FAERS Safety Report 7645051-9 (Version None)
Quarter: 2011Q3

REPORT INFORMATION
  Report Type: 
  Country: None (occurrence: None)
  Receive Date: 20110729
  Receipt Date: 20110718
  Transmission Date: 20111222
  Serious: Yes (Other)
  Sender: FDA-Public Use
  Company Number: CN-GLAXOSMITHKLINE-B0735705A

PATIENT

DRUGS (1)
  1. BECLOMETHASONE DIPROPIONATE [Suspect]
     Dosage: 300MCG TWICE PER DAY
     Route: 065

REACTIONS (2)
  - PAPULE [None]
  - ERYTHEMA [None]
